FAERS Safety Report 5933653-7 (Version None)
Quarter: 2008Q4

REPORT INFORMATION
  Report Type: 
  Country: None (occurrence: None)
  Receive Date: 20081029
  Receipt Date: 20081016
  Transmission Date: 20090506
  Serious: Yes (Other)
  Sender: FDA-Public Use
  Company Number: US-BAYER-200831974NA

PATIENT
  Age: 18 Year
  Sex: Female
  Weight: 67 kg

DRUGS (1)
  1. MIRENA [Suspect]
     Indication: DRUG USE FOR UNKNOWN INDICATION
     Route: 015
     Dates: start: 20080724

REACTIONS (5)
  - ANTEPARTUM HAEMORRHAGE [None]
  - DIZZINESS [None]
  - NO ADVERSE EVENT [None]
  - PROCEDURAL PAIN [None]
  - SYNCOPE [None]
